FAERS Safety Report 7102433 (Version 3)
Quarter: 2013Q3

REPORT INFORMATION
  Report Type: Spontaneous
  Country: US (occurrence: US)
  Receive Date: 20090901
  Receipt Date: 20130820
  Transmission Date: 20140515
  Serious: Yes (Life-Threatening, Hospitalization, Other)
  Sender: FDA-Public Use
  Company Number: US-JNJFOC-20090900068

PATIENT
  Sex: 0

DRUGS (1)
  1. FENTANYL [Suspect]
     Indication: DRUG ABUSE
     Dosage: 3 100 UG/HR PATCHES
     Route: 048

REACTIONS (8)
  - Loss of consciousness [Recovered/Resolved]
  - Respiratory rate decreased [Recovering/Resolving]
  - Cyanosis [Recovered/Resolved]
  - Toxicity to various agents [Recovering/Resolving]
  - Hypoxia [Recovered/Resolved]
  - Intentional drug misuse [Unknown]
  - Drug abuse [Unknown]
  - Wrong technique in drug usage process [Unknown]
